FAERS Safety Report 8974889 (Version 1)
Quarter: 2012Q4

REPORT INFORMATION
  Report Type: 
  Country: DE (occurrence: DE)
  Receive Date: 20121220
  Receipt Date: 20121220
  Transmission Date: 20130627
  Serious: Yes (Other)
  Sender: FDA-Public Use
  Company Number: DE-ELI_LILLY_AND_COMPANY-DE201212003095

PATIENT
  Sex: Female

DRUGS (12)
  1. FORSTEO [Suspect]
     Indication: OSTEOPOROSIS
     Dosage: UNK, qd
     Route: 058
     Dates: start: 20111216
  2. CALCIUM [Concomitant]
  3. YENTREVE [Concomitant]
  4. FORMATRIS [Concomitant]
     Dosage: UNK, bid
  5. MIFLONIDE [Concomitant]
     Dosage: UNK, bid
  6. SPIRIVA [Concomitant]
     Dosage: UNK, qd
  7. SALBUTAMOL [Concomitant]
     Dosage: UNK, prn
  8. SIMVABETA [Concomitant]
     Dosage: UNK, qd
  9. ASS [Concomitant]
     Dosage: UNK, qd
  10. BISOPROLOL [Concomitant]
     Dosage: UNK, bid
  11. PANTOPRAZOL [Concomitant]
  12. MCP [Concomitant]

REACTIONS (4)
  - Loss of consciousness [Unknown]
  - Fall [Not Recovered/Not Resolved]
  - Cough [Not Recovered/Not Resolved]
  - Contusion [Unknown]
